FAERS Safety Report 13362129 (Version 1)
Quarter: 2017Q1

REPORT INFORMATION
  Report Type: Spontaneous
  Country: JP (occurrence: JP)
  Receive Date: 20170323
  Receipt Date: 20170323
  Transmission Date: 20170429
  Serious: Yes (Hospitalization, Other)
  Sender: FDA-Public Use
  Company Number: JP-GLAXOSMITHKLINE-JP2017JPN038087

PATIENT
  Age: 36 Year
  Sex: Male

DRUGS (5)
  1. ZOVIRAX [Suspect]
     Active Substance: ACYCLOVIR
     Indication: MENINGOENCEPHALITIS HERPETIC
     Dosage: 500 MG, TID
     Route: 042
     Dates: start: 20170309, end: 20170315
  2. VOLTAREN EX TAPE [Concomitant]
     Active Substance: DICLOFENAC SODIUM
     Dosage: UNK
     Dates: start: 20170309
  3. MEROPEN [Concomitant]
     Active Substance: MEROPENEM
     Dosage: UNK
     Dates: start: 20170315
  4. METHYLPREDNISOLONE. [Concomitant]
     Active Substance: METHYLPREDNISOLONE
     Dosage: UNK
     Dates: start: 20170313
  5. ZOVIRAX [Suspect]
     Active Substance: ACYCLOVIR
     Dosage: 250 MG, BID
     Route: 042
     Dates: start: 201703

REACTIONS (5)
  - Altered state of consciousness [Not Recovered/Not Resolved]
  - Dyslalia [Unknown]
  - Toxic encephalopathy [Unknown]
  - Hallucination, visual [Unknown]
  - Renal impairment [Unknown]

NARRATIVE: CASE EVENT DATE: 201703
